FAERS Safety Report 6982232-1 (Version None)
Quarter: 2010Q3

REPORT INFORMATION
  Report Type: 
  Country: None (occurrence: None)
  Receive Date: 20100914
  Receipt Date: 20091123
  Transmission Date: 20110219
  Serious: Yes (Other)
  Sender: FDA-Public Use
  Company Number: US-PFIZER INC-2009305618

PATIENT
  Sex: Male

DRUGS (3)
  1. LYRICA [Suspect]
     Dosage: UNK
     Dates: start: 20090101
  2. MORPHINE SULFATE [Suspect]
     Dosage: UNK
     Dates: start: 20090101
  3. ACETAMINOPHEN AND HYDROCODONE BITARTRATE [Suspect]
     Dosage: UNK
     Dates: start: 20090101

REACTIONS (4)
  - INSOMNIA [None]
  - PAIN IN EXTREMITY [None]
  - SOMNOLENCE [None]
  - VISION BLURRED [None]
